FAERS Safety Report 14368693 (Version 2)
Quarter: 2019Q2

REPORT INFORMATION
  Report Type: Spontaneous
  Country: US (occurrence: US)
  Receive Date: 20180109
  Receipt Date: 20190501
  Transmission Date: 20190711
  Serious: No
  Sender: FDA-Public Use
  Company Number: US-PFIZER INC-2017540724

PATIENT
  Age: 68 Year
  Sex: Male
  Weight: 95 kg

DRUGS (8)
  1. ATROPINE SULFATE/DIPHENOXYLATE HYDROCHLORIDE [Suspect]
     Active Substance: ATROPINE SULFATE\DIPHENOXYLATE HYDROCHLORIDE
     Dosage: UNK, AS NEEDED (2.5-0.025 4X DAY AS NEEDED)
     Dates: start: 20170721
  2. IMMODIN [Concomitant]
     Indication: DIARRHOEA
     Dosage: 2 MG, AS NEEDED
     Dates: start: 2016
  3. ATROPINE SULFATE/DIPHENOXYLATE HYDROCHLORIDE [Suspect]
     Active Substance: ATROPINE SULFATE\DIPHENOXYLATE HYDROCHLORIDE
     Indication: DIARRHOEA
     Dosage: 2 DF, 4X/DAY (ATROPINE SULFATE 0.025 MG/DIPHENOXYLATE HCL 2.5 MG TABLET, 2 TABLETS EVERY 6 HOURS)
     Route: 048
     Dates: start: 20170721, end: 20170724
  4. LOVENOX [Concomitant]
     Active Substance: ENOXAPARIN SODIUM
     Indication: ANTICOAGULANT THERAPY
     Dosage: 150 MG, DAILY
     Dates: start: 201606
  5. ATORVASTATIN CALCIUM. [Concomitant]
     Active Substance: ATORVASTATIN CALCIUM
     Indication: BLOOD CHOLESTEROL ABNORMAL
     Dosage: 20 MG, DAILY
  6. SERTRALINE [Concomitant]
     Active Substance: SERTRALINE HYDROCHLORIDE
     Indication: CEREBROVASCULAR ACCIDENT
     Dosage: 100 MG, DAILY
     Dates: start: 2001
  7. DIGOXIN. [Concomitant]
     Active Substance: DIGOXIN
     Indication: HEART RATE ABNORMAL
     Dosage: 0.125 MG, DAILY
     Dates: start: 201901, end: 201901
  8. WARFARIN [Concomitant]
     Active Substance: WARFARIN
     Dosage: UNK

REACTIONS (8)
  - Repetitive speech [Recovered/Resolved]
  - Eating disorder [Unknown]
  - Feeling abnormal [Recovered/Resolved]
  - Feeling jittery [Recovered/Resolved]
  - Recalled product administered [Unknown]
  - Insomnia [Recovered/Resolved]
  - Logorrhoea [Recovered/Resolved]
  - Anxiety [Recovering/Resolving]

NARRATIVE: CASE EVENT DATE: 20170723
